FAERS Safety Report 5011788-3 (Version None)
Quarter: 2006Q2

REPORT INFORMATION
  Report Type: 
  Country: None (occurrence: None)
  Receive Date: 20060526
  Receipt Date: 20060518
  Transmission Date: 20061013
  Serious: Yes (Hospitalization)
  Sender: FDA-Public Use
  Company Number: CA-JNJFOC-20060504586

PATIENT
  Age: 65 Year
  Sex: Female

DRUGS (8)
  1. REMICADE [Suspect]
     Route: 042
  2. REMICADE [Suspect]
     Indication: RHEUMATOID ARTHRITIS
     Route: 042
  3. METHOTREXATE [Concomitant]
     Route: 048
  4. FOLIC ACID [Concomitant]
  5. CALCIUM GLUCONATE [Concomitant]
  6. VITAMIN D [Concomitant]
  7. ALTACE [Concomitant]
  8. LIPITOR [Concomitant]

REACTIONS (2)
  - HAEMOTHORAX [None]
  - SHOULDER PAIN [None]
